FAERS Safety Report 6691559-2 (Version None)
Quarter: 2010Q2

REPORT INFORMATION
  Report Type: 
  Country: None (occurrence: None)
  Receive Date: 20100419
  Receipt Date: 20100406
  Transmission Date: 20101027
  Serious: Yes (Life-Threatening, Hospitalization)
  Sender: FDA-Public Use
  Company Number: 2010AL002163

PATIENT
  Age: 64 Year
  Sex: Female

DRUGS (8)
  1. METOCLOPRAMIDE [Suspect]
     Dosage: PRN;IV
     Route: 042
  2. GEMCITABINE HCL [Concomitant]
  3. DEXAMETHASONE [Concomitant]
  4. CARBOPLATIN [Concomitant]
  5. ONDANSETRON [Concomitant]
  6. PARACETAMOL [Concomitant]
  7. TRAMADOL HCL [Concomitant]
  8. IBRUPROFEN [Concomitant]

REACTIONS (1)
  - MALAISE [None]
